FAERS Safety Report 5918049-6 (Version None)
Quarter: 2008Q4

REPORT INFORMATION
  Report Type: 
  Country: None (occurrence: None)
  Receive Date: 20081014
  Receipt Date: 20081002
  Transmission Date: 20090506
  Serious: Yes (Hospitalization, Other)
  Sender: FDA-Public Use
  Company Number: FR-PFIZER INC-2008083777

PATIENT
  Age: 23 Year
  Sex: Female

DRUGS (1)
  1. LITHIUM [Suspect]
     Indication: DEPRESSION
     Dosage: DAILY DOSE:750MG

REACTIONS (2)
  - DEMYELINATION [None]
  - DIABETES INSIPIDUS [None]
